FAERS Safety Report 4300718-5 (Version None)
Quarter: 2004Q1

REPORT INFORMATION
  Report Type: 
  Country: None (occurrence: None)
  Receive Date: 20040218
  Receipt Date: 20040203
  Transmission Date: 20041129
  Serious: Yes (Other)
  Sender: FDA-Public Use
  Company Number: USA040258381

PATIENT
  Age: 82 Year
  Sex: Female

DRUGS (2)
  1. EVISTA [Suspect]
     Dosage: 60 MG
  2. FOSAMAX (ALENDRONATE SDOIUM) [Concomitant]

REACTIONS (2)
  - COMPRESSION FRACTURE [None]
  - FALL [None]
